FAERS Safety Report 5096133-X (Version None)
Quarter: 2006Q3

REPORT INFORMATION
  Report Type: 
  Country: None (occurrence: None)
  Receive Date: 20060731
  Receipt Date: 20060428
  Transmission Date: 20061208
  Serious: No
  Sender: FDA-Public Use
  Company Number: 2006PV012928

PATIENT
  Age: 66 Year
  Sex: Female

DRUGS (3)
  1. BYETTA [Suspect]
     Indication: WEIGHT DECREASED
     Dosage: SEE IMAGE
     Route: 058
     Dates: start: 20060101, end: 20060101
  2. BYETTA [Suspect]
     Indication: WEIGHT DECREASED
     Dosage: SEE IMAGE
     Route: 058
     Dates: start: 20060101, end: 20060101
  3. BYETTA [Suspect]
     Indication: WEIGHT DECREASED
     Dosage: SEE IMAGE
     Route: 058
     Dates: start: 20060101

REACTIONS (6)
  - DRUG HYPERSENSITIVITY [None]
  - DRUG INEFFECTIVE [None]
  - INFLUENZA [None]
  - THYROID NEOPLASM [None]
  - URTICARIA [None]
  - WEIGHT DECREASED [None]
